APPROVED DRUG PRODUCT: PARCOPA
Active Ingredient: CARBIDOPA; LEVODOPA
Strength: 25MG;250MG **Federal Register determination that product was not discontinued or withdrawn for safety or effectiveness reasons**
Dosage Form/Route: TABLET, ORALLY DISINTEGRATING;ORAL
Application: A076699 | Product #003
Applicant: UCB INC
Approved: Aug 27, 2004 | RLD: No | RS: No | Type: DISCN